FAERS Safety Report 8411811 (Version 4)
Quarter: 2013Q2

REPORT INFORMATION
  Report Type: Report from Study
  Country: JP (occurrence: JP)
  Receive Date: 20120217
  Receipt Date: 20130611
  Transmission Date: 20140414
  Serious: Yes (Other)
  Sender: FDA-Public Use
  Company Number: PHHY2009JP14596

PATIENT
  Age: 58 Year
  Sex: 0

DRUGS (20)
  1. AMN107 [Suspect]
     Indication: CHRONIC MYELOID LEUKAEMIA
     Dosage: 800 MG, DAILY
     Route: 048
     Dates: start: 20090324, end: 20090507
  2. AMN107 [Suspect]
     Dosage: 400 MG, DAILY
     Route: 048
     Dates: start: 20090527, end: 20110912
  3. AMN107 [Suspect]
     Dosage: 600 MG, DAIY
     Route: 048
     Dates: start: 20110913, end: 20120306
  4. AMN107 [Suspect]
     Dosage: 800 MG, DAILY
     Route: 048
     Dates: start: 20120307
  5. AMARYL [Concomitant]
     Indication: DIABETES MELLITUS
     Dosage: 1 MG, UNK
     Route: 048
     Dates: start: 20071224, end: 20110815
  6. AMARYL [Concomitant]
     Dosage: 2 MG, UNK
     Route: 048
     Dates: start: 20100406
  7. SEIBULE [Concomitant]
     Indication: DIABETES MELLITUS
     Dosage: 150 MG, UNK
     Route: 048
     Dates: start: 20071221, end: 20100809
  8. OMEPRAL [Concomitant]
     Indication: PROPHYLAXIS
     Dosage: 20 MG, UNK
     Route: 048
     Dates: start: 20071212, end: 20100623
  9. INSULIN [Concomitant]
     Indication: DIABETES MELLITUS
     Dosage: 32 IU, UNK
     Route: 058
     Dates: start: 20100810
  10. INSULIN [Concomitant]
     Dosage: 42 IU, UNK
     Route: 058
  11. INSULIN [Concomitant]
     Dosage: 48 IU, UNK
     Route: 058
  12. INSULIN [Concomitant]
     Dosage: 52 IU, UNK
     Route: 058
     Dates: end: 20110412
  13. PARIET [Concomitant]
     Indication: PROPHYLAXIS
     Dosage: 10 MG, UNK
     Route: 048
     Dates: start: 20100124, end: 20100917
  14. GASTER D [Concomitant]
     Dosage: 20 MG, UNK
     Route: 048
  15. FELBINAC [Concomitant]
     Route: 058
  16. LANTUS [Concomitant]
     Indication: DIABETES MELLITUS
     Dosage: 20 IU, UNK
     Route: 058
  17. LANTUS [Concomitant]
     Dosage: 22 IU, UNK
     Route: 058
  18. METGLUCO [Concomitant]
     Indication: DIABETES MELLITUS
     Dosage: 500 MG, UNK
     Route: 048
     Dates: start: 20110814, end: 20111108
  19. JANUVIA [Concomitant]
     Indication: DIABETES MELLITUS
     Dosage: 25 MG, UNK
     Route: 048
     Dates: start: 20120208
  20. JANUVIA [Concomitant]
     Dosage: 50 MG, UNK
     Route: 048

REACTIONS (5)
  - Platelet count decreased [Recovered/Resolved]
  - Hyperglycaemia [Not Recovered/Not Resolved]
  - Glycosylated haemoglobin increased [Recovering/Resolving]
  - Bilirubin conjugated increased [Recovered/Resolved]
  - Blood bilirubin increased [Recovered/Resolved]
